FAERS Safety Report 9719278 (Version 2)
Quarter: 2013Q4

REPORT INFORMATION
  Report Type: Report from Study
  Country: MX (occurrence: MX)
  Receive Date: 20131127
  Receipt Date: 20131127
  Transmission Date: 20140711
  Serious: Yes (Hospitalization, Other)
  Sender: FDA-Public Use
  Company Number: PHHY2012MX017146

PATIENT
  Age: 64 Year
  Sex: Female

DRUGS (4)
  1. EXFORGE [Suspect]
     Indication: HYPERTENSION
     Dosage: 1 DF (160/5 MG), DAILY
     Route: 048
     Dates: start: 201201, end: 2012
  2. EXFORGE [Suspect]
     Dosage: UNK UKN, UNK
     Dates: start: 201311
  3. SHOT B [Concomitant]
     Dosage: 1 UKN, DAILY
     Dates: start: 2012
  4. ASPIRIN [Concomitant]
     Indication: INFARCTION
     Dosage: 1 UKN, OCCASIONALY
     Dates: start: 2012

REACTIONS (3)
  - Retinal detachment [Not Recovered/Not Resolved]
  - Aggression [Recovered/Resolved]
  - Feeling of despair [Not Recovered/Not Resolved]
